FAERS Safety Report 10085934 (Version 4)
Quarter: 2015Q2

REPORT INFORMATION
  Report Type: Spontaneous
  Country: US (occurrence: None)
  Receive Date: 20140416
  Receipt Date: 20150506
  Transmission Date: 20150821
  Serious: Yes (Other)
  Sender: FDA-Public Use
  Company Number: ADR-2013-01504

PATIENT
  Sex: Female
  Weight: 40.82 kg

DRUGS (6)
  1. BACLOFEN INTRATHECAL [Suspect]
     Active Substance: BACLOFEN
     Indication: PAIN
     Dosage: UNK
  2. MORPHINE [Suspect]
     Active Substance: MORPHINE
  3. SUFENTA [Suspect]
     Active Substance: SUFENTANIL CITRATE
  4. FENTANYL. [Suspect]
     Active Substance: FENTANYL
     Dosage: SEE ALSO B5
  5. BUPIVACAINE [Suspect]
     Active Substance: BUPIVACAINE
  6. DILAUDID [Suspect]
     Active Substance: HYDROMORPHONE HYDROCHLORIDE
     Dosage: 10 MG/ML AT A DOSE OF 2.6 MG/DAY

REACTIONS (25)
  - Pain [None]
  - Scoliosis [None]
  - Device breakage [None]
  - Unevaluable event [None]
  - Neuralgia [None]
  - Mobility decreased [None]
  - Catheter site related reaction [None]
  - No therapeutic response [None]
  - Pain in extremity [None]
  - Altered state of consciousness [None]
  - Dysuria [None]
  - Contusion [None]
  - Therapeutic response unexpected [None]
  - Medical device pain [None]
  - Patient-device incompatibility [None]
  - Fall [None]
  - Feeling abnormal [None]
  - Drug hypersensitivity [None]
  - Implant site pain [None]
  - Medical device complication [None]
  - Scar [None]
  - Gastrointestinal sounds abnormal [None]
  - Memory impairment [None]
  - Weight decreased [None]
  - Constipation [None]
